FAERS Safety Report 8836539 (Version 1)
Quarter: 2012Q4

REPORT INFORMATION
  Report Type: Spontaneous
  Country: GB (occurrence: None)
  Receive Date: 20121009
  Receipt Date: 20121009
  Transmission Date: 20130627
  Serious: Yes (Hospitalization)
  Sender: FDA-Public Use
  Company Number: AUR-APL-2012-04190

PATIENT
  Age: 16 Year
  Sex: Female

DRUGS (1)
  1. FLUOXETINE [Suspect]
     Indication: MOOD DISORDER NOS
     Route: 048
     Dates: start: 20120718, end: 20120906

REACTIONS (3)
  - Suicidal ideation [None]
  - Agitation [None]
  - Hospitalisation [None]
